FAERS Safety Report 6820086-4 (Version None)
Quarter: 2010Q3

REPORT INFORMATION
  Report Type: 
  Country: None (occurrence: None)
  Receive Date: 20100707
  Receipt Date: 20100706
  Transmission Date: 20110219
  Serious: Yes (Hospitalization)
  Sender: FDA-Public Use
  Company Number: B0663947A

PATIENT
  Age: 74 Year
  Sex: Male

DRUGS (3)
  1. AMPICILLIN SODIUM/SULBACTAM SODIUM [Suspect]
     Route: 048
     Dates: start: 20100317, end: 20100323
  2. QUININE SULFATE [Concomitant]
     Dosage: 300MG PER DAY
     Route: 048
  3. OMEPRAZOLE [Concomitant]
     Dosage: 20MG PER DAY
     Route: 048

REACTIONS (1)
  - CONVULSION [None]
